FAERS Safety Report 23159682 (Version 1)
Quarter: 2023Q4

REPORT INFORMATION
  Report Type: Spontaneous
  Country: FR (occurrence: FR)
  Receive Date: 20231108
  Receipt Date: 20231108
  Transmission Date: 20240109
  Serious: Yes (Other)
  Sender: FDA-Public Use
  Company Number: FR-AMGEN- FRASP2023170128

PATIENT

DRUGS (3)
  1. LUMAKRAS [Suspect]
     Active Substance: SOTORASIB
     Indication: Product used for unknown indication
     Dosage: 720 MILLIGRAM, QD
     Route: 065
  2. LUMAKRAS [Suspect]
     Active Substance: SOTORASIB
     Dosage: UNK, DOSE DECREASED
     Route: 065
     Dates: start: 20221216, end: 202212
  3. LUMAKRAS [Suspect]
     Active Substance: SOTORASIB
     Dosage: 480 MILLIGRAM, QD
     Route: 065
     Dates: start: 20221230, end: 20230927

REACTIONS (3)
  - Disease progression [Unknown]
  - Adverse drug reaction [Unknown]
  - Off label use [Unknown]
